FAERS Safety Report 11840114 (Version 1)
Quarter: 2015Q4

REPORT INFORMATION
  Report Type: Spontaneous
  Country: US (occurrence: None)
  Receive Date: 20151215
  Receipt Date: 20151215
  Transmission Date: 20160305
  Serious: No
  Sender: FDA-Public Use
  Company Number: None

PATIENT
  Age: 69 Year
  Sex: Female
  Weight: 71.22 kg

DRUGS (4)
  1. NIASPAN [Concomitant]
     Active Substance: NIACIN
  2. RAMIPRIL. [Concomitant]
     Active Substance: RAMIPRIL
  3. JARDIANCE [Suspect]
     Active Substance: EMPAGLIFLOZIN
     Indication: TYPE 2 DIABETES MELLITUS
     Route: 048
     Dates: start: 20151204, end: 20151213
  4. LEVOTHYROXIN [Concomitant]
     Active Substance: LEVOTHYROXINE

REACTIONS (3)
  - Dizziness [None]
  - Potentiating drug interaction [None]
  - Erythema [None]

NARRATIVE: CASE EVENT DATE: 20151213
